FAERS Safety Report 15737448 (Version 1)
Quarter: 2018Q4

REPORT INFORMATION
  Report Type: Report from Study
  Country: None (occurrence: US)
  Receive Date: 20181218
  Receipt Date: 20181218
  Transmission Date: 20190205
  Serious: Yes (Other)
  Sender: FDA-Public Use
  Company Number: US-ABBVIE-18K-163-2584468-00

PATIENT
  Sex: Female

DRUGS (2)
  1. HUMIRA [Suspect]
     Active Substance: ADALIMUMAB
     Indication: ANKYLOSING SPONDYLITIS
     Dosage: OFF THE MEDICATION FOR 4 MONTHS DUE TO BENEFIT EXPIRATION
     Route: 058
     Dates: start: 2016
  2. HUMIRA [Suspect]
     Active Substance: ADALIMUMAB
     Route: 058
     Dates: start: 201811

REACTIONS (11)
  - Autoimmune enteropathy [Unknown]
  - Pharyngeal ulceration [Unknown]
  - Loss of personal independence in daily activities [Recovering/Resolving]
  - Musculoskeletal stiffness [Recovering/Resolving]
  - Fatigue [Recovering/Resolving]
  - Impaired quality of life [Recovering/Resolving]
  - Tooth fracture [Unknown]
  - Coccydynia [Recovering/Resolving]
  - Arthralgia [Recovering/Resolving]
  - Stomatitis [Unknown]
  - Neck pain [Recovering/Resolving]
